FAERS Safety Report 23781469 (Version 2)
Quarter: 2024Q2

REPORT INFORMATION
  Report Type: Spontaneous
  Country: US (occurrence: US)
  Receive Date: 20240425
  Receipt Date: 20240503
  Transmission Date: 20240716
  Serious: Yes (Life-Threatening, Hospitalization, Disabling, Other)
  Sender: FDA-Public Use
  Company Number: None

PATIENT
  Age: 8 Year
  Sex: Male

DRUGS (3)
  1. TACROLIMUS [Suspect]
     Active Substance: TACROLIMUS
     Indication: Product used for unknown indication
     Dosage: UNK
     Route: 065
  2. ACETAZOLAMIDE [Concomitant]
     Active Substance: ACETAZOLAMIDE
     Indication: Intracranial pressure increased
     Dosage: UNK
     Route: 065
  3. ACETAZOLAMIDE [Concomitant]
     Active Substance: ACETAZOLAMIDE
     Dosage: UNK (DOSE INCREASED)
     Route: 065

REACTIONS (11)
  - Retinal haemorrhage [Recovered/Resolved]
  - Cavernous sinus thrombosis [Not Recovered/Not Resolved]
  - Cerebrovascular accident [Not Recovered/Not Resolved]
  - Blindness [Not Recovered/Not Resolved]
  - Thrombotic microangiopathy [Not Recovered/Not Resolved]
  - Clostridium difficile colitis [Unknown]
  - Gastroenteritis cryptosporidial [Unknown]
  - Molluscum contagiosum [Unknown]
  - Otitis media [Unknown]
  - Sinusitis [Unknown]
  - Upper respiratory tract infection [Unknown]
